FAERS Safety Report 21724640 (Version 1)
Quarter: 2022Q4

REPORT INFORMATION
  Report Type: Report from Study
  Country: CN (occurrence: CN)
  Receive Date: 20221213
  Receipt Date: 20221213
  Transmission Date: 20230112
  Serious: Yes (Other)
  Sender: FDA-Public Use
  Company Number: CN-SUN PHARMACEUTICAL INDUSTRIES LTD-2022R1-367982

PATIENT
  Age: 34 Year
  Sex: Female

DRUGS (3)
  1. DOCETAXEL [Suspect]
     Active Substance: DOCETAXEL
     Indication: Signet-ring cell carcinoma
     Dosage: 60 MILLIGRAM D1, 8 (3 CYCLES)
     Route: 042
  2. CAMRELIZUMAB [Suspect]
     Active Substance: CAMRELIZUMAB
     Indication: Signet-ring cell carcinoma
     Dosage: 200 MILLIGRAM D1 Q14 D (3 CYCLES)
     Route: 042
  3. APATINIB [Suspect]
     Active Substance: APATINIB
     Indication: Signet-ring cell carcinoma
     Dosage: 250 MILLIGRAM, QD 1 CYCLE, Q21D (3 CYCLES)
     Route: 048

REACTIONS (4)
  - Disease progression [Not Recovered/Not Resolved]
  - Alopecia [Unknown]
  - Nausea [Unknown]
  - Vomiting [Unknown]
